FAERS Safety Report 26132160 (Version 1)
Quarter: 2025Q4

REPORT INFORMATION
  Report Type: Spontaneous
  Country: AU (occurrence: AU)
  Receive Date: 20251208
  Receipt Date: 20251208
  Transmission Date: 20260118
  Serious: Yes (Other)
  Sender: NOVO NORDISK
  Company Number: AU-NOVOPROD-1575695

PATIENT

DRUGS (1)
  1. WEGOVY [Suspect]
     Active Substance: SEMAGLUTIDE
     Indication: Product used for unknown indication
     Dosage: UNK (STARTED WEGOVY 2 MONTHS AGO)

REACTIONS (4)
  - Systemic lupus erythematosus [Unknown]
  - Hyperphagia [Unknown]
  - Weight loss poor [Unknown]
  - Drug effect less than expected [Unknown]
